FAERS Safety Report 14491936 (Version 1)
Quarter: 2018Q1

REPORT INFORMATION
  Report Type: Report from Study
  Country: None (occurrence: BR)
  Receive Date: 20180206
  Receipt Date: 20180206
  Transmission Date: 20180509
  Serious: Yes (Hospitalization, Other)
  Sender: FDA-Public Use
  Company Number: BR-ABBVIE-17K-020-2100673-00

PATIENT
  Sex: Female
  Weight: 47 kg

DRUGS (2)
  1. PANTOPRAZOLE [Concomitant]
     Active Substance: PANTOPRAZOLE
     Indication: GASTRIC DISORDER
  2. HUMIRA [Suspect]
     Active Substance: ADALIMUMAB
     Indication: PSORIATIC ARTHROPATHY
     Route: 058
     Dates: start: 20120101, end: 201708

REACTIONS (10)
  - Colostomy [Unknown]
  - Osteoarthritis [Unknown]
  - Complication associated with device [Unknown]
  - Endometriosis [Not Recovered/Not Resolved]
  - Kidney infection [Recovering/Resolving]
  - Ureteric stenosis [Unknown]
  - Pain [Unknown]
  - Muscle spasms [Recovering/Resolving]
  - Urinary tract infection [Recovered/Resolved]
  - Hydronephrosis [Recovering/Resolving]

NARRATIVE: CASE EVENT DATE: 2017
